FAERS Safety Report 8399477-9 (Version None)
Quarter: 2012Q2

REPORT INFORMATION
  Report Type: 
  Country: None (occurrence: None)
  Receive Date: 20120531
  Receipt Date: 20120523
  Transmission Date: 20120825
  Serious: Yes (Other)
  Sender: FDA-Public Use
  Company Number: US-US-EMD SERONO, INC.-7055486

PATIENT
  Sex: Female
  Weight: 61 kg

DRUGS (4)
  1. REBIF [Suspect]
     Indication: MULTIPLE SCLEROSIS
     Route: 058
     Dates: start: 20040202, end: 20110901
  2. REBIF [Suspect]
     Route: 058
     Dates: start: 20120101
  3. UNKNOWN MEDICATION [Concomitant]
     Indication: BLADDER DISORDER
  4. UNSPECIFIED MEDICATION [Concomitant]
     Indication: GASTROOESOPHAGEAL REFLUX DISEASE

REACTIONS (1)
  - RENAL CELL CARCINOMA [None]
